FAERS Safety Report 9737388 (Version 2)
Quarter: 2013Q4

REPORT INFORMATION
  Report Type: Spontaneous
  Country: JP (occurrence: JP)
  Receive Date: 20131206
  Receipt Date: 20131218
  Transmission Date: 20140711
  Serious: Yes (Hospitalization)
  Sender: FDA-Public Use
  Company Number: JP-BAXTER-2013BAX047998

PATIENT
  Sex: Female
  Weight: 45 kg

DRUGS (1)
  1. DIANEAL-N PD-4 2.5 PD SOLUTION [Suspect]
     Indication: GLOMERULONEPHRITIS
     Route: 033
     Dates: start: 20090715, end: 20131130

REACTIONS (2)
  - Cardiac failure acute [Not Recovered/Not Resolved]
  - Fluid retention [Not Recovered/Not Resolved]
